FAERS Safety Report 7486031-6 (Version None)
Quarter: 2011Q2

REPORT INFORMATION
  Report Type: 
  Country: None (occurrence: None)
  Receive Date: 20110517
  Receipt Date: 20110328
  Transmission Date: 20111010
  Serious: Yes (Other)
  Sender: FDA-Public Use
  Company Number: US-BAYER-2011-026850

PATIENT
  Age: 36 Year
  Sex: Female

DRUGS (1)
  1. AVELOX [Suspect]
     Indication: EYE INFECTION
     Dosage: 400 MG, ONCE
     Route: 048
     Dates: start: 20110325, end: 20110325

REACTIONS (5)
  - PSYCHOTIC DISORDER [None]
  - DEPRESSION [None]
  - HEART RATE INCREASED [None]
  - FEELING ABNORMAL [None]
  - LOSS OF CONSCIOUSNESS [None]
